FAERS Safety Report 9767897 (Version 1)
Quarter: 2013Q4

REPORT INFORMATION
  Report Type: Spontaneous
  Country: US (occurrence: None)
  Receive Date: 20131213
  Receipt Date: 20131213
  Transmission Date: 20140711
  Serious: Yes (Other)
  Sender: FDA-Public Use
  Company Number: 1312-1562

PATIENT
  Age: 46 Year
  Sex: Male

DRUGS (2)
  1. EYLEA (AFLIBERCEPT) (INJECTION) [Suspect]
     Indication: AGE-RELATED MACULAR DEGENERATION
     Dates: start: 2013
  2. ICAPS  WITH LUTEIN AND ZEAXANTHIN [Concomitant]

REACTIONS (3)
  - Eye pain [None]
  - Vision blurred [None]
  - Eye haemorrhage [None]
